FAERS Safety Report 4915211-6 (Version None)
Quarter: 2006Q1

REPORT INFORMATION
  Report Type: 
  Country: None (occurrence: None)
  Receive Date: 20060216
  Receipt Date: 20060216
  Transmission Date: 20060701
  Serious: Yes (Hospitalization)
  Sender: FDA-Public Use
  Company Number: None

PATIENT
  Sex: Female
  Weight: 44.4525 kg

DRUGS (13)
  1. DIGOXIN [Suspect]
     Indication: CARDIAC DISORDER
     Dosage: 0.125 MG PO QD PRIOR TO ADMISSION
     Route: 048
  2. ATENOLOL [Suspect]
     Indication: CARDIAC DISORDER
     Dosage: 12.5 MG PO BID PRIOR TO ADMISSION
     Route: 048
  3. ATENOLOL [Suspect]
     Indication: HYPERTENSION
     Dosage: 12.5 MG PO BID PRIOR TO ADMISSION
     Route: 048
  4. AGGRENOX [Concomitant]
  5. PRINIVIL [Concomitant]
  6. ATENOLOL [Concomitant]
  7. PROTONIX [Concomitant]
  8. ZOCOR [Concomitant]
  9. FOSAMAX [Concomitant]
  10. ZOLOFT [Concomitant]
  11. FESO4 [Concomitant]
  12. CALCIUM GLUCONATE [Concomitant]
  13. LASIX [Concomitant]

REACTIONS (3)
  - HEAD INJURY [None]
  - HEART RATE DECREASED [None]
  - LOSS OF CONSCIOUSNESS [None]
